FAERS Safety Report 8831284 (Version 1)
Quarter: 2012Q4

REPORT INFORMATION
  Report Type: 
  Country: GB (occurrence: GB)
  Receive Date: 20121008
  Receipt Date: 20121008
  Transmission Date: 20130627
  Serious: Yes (Other)
  Sender: FDA-Public Use
  Company Number: GB-PFIZER INC-2012242492

PATIENT
  Age: 80 Year
  Sex: Female

DRUGS (11)
  1. AROMASIN [Suspect]
     Indication: BREAST CANCER
     Dosage: 25 mg, 1x/day
     Route: 048
     Dates: start: 20120607
  2. OMEPRAZOLE [Concomitant]
     Dosage: 20 mg, 1x/day
     Route: 048
  3. PREDNISOLONE [Concomitant]
     Indication: POLYMYALGIA RHEUMATICA
     Dosage: 5 mg, 1x/day
     Route: 048
     Dates: start: 20120312, end: 20120910
  4. PREDNISOLONE [Concomitant]
     Dosage: 2.5 mg, 1x/day
     Dates: start: 20120911
  5. MIRTAZAPINE [Concomitant]
     Indication: ANXIETY
     Dosage: 30 mg, 1x/day
     Route: 048
  6. MIRTAZAPINE [Concomitant]
     Indication: DEPRESSION
  7. LEVOTHYROXINE [Concomitant]
     Indication: HYPOTHYROIDISM
     Dosage: 100 mg, 1x/day
     Route: 048
  8. AMITRIPTYLINE [Concomitant]
     Dosage: 25 mg, 1x/day, at night
     Route: 048
  9. ALENDRONIC ACID [Concomitant]
     Dosage: 70 mg, weekly
     Route: 048
  10. CO-CODAMOL [Concomitant]
     Indication: PAIN
     Dosage: 8mg/500mg 1-2 every 4 hours as required
     Route: 048
  11. CALCIUM W/COLECALCIFEROL [Concomitant]
     Dosage: 400/1.25g
     Route: 048

REACTIONS (4)
  - Renal impairment [Unknown]
  - Blood creatinine abnormal [Unknown]
  - Malaise [Unknown]
  - Swelling [Unknown]
